FAERS Safety Report 23681229 (Version 1)
Quarter: 2024Q1

REPORT INFORMATION
  Report Type: Spontaneous
  Country: GB (occurrence: GB)
  Receive Date: 20240328
  Receipt Date: 20240328
  Transmission Date: 20240410
  Serious: Yes (Hospitalization, Other)
  Sender: FDA-Public Use
  Company Number: None

PATIENT
  Sex: Female

DRUGS (29)
  1. OMEPRAZOLE [Suspect]
     Active Substance: OMEPRAZOLE
     Indication: Product used for unknown indication
     Dosage: 20 MG
  2. OMEPRAZOLE [Suspect]
     Active Substance: OMEPRAZOLE
  3. ACYCLOVIR [Suspect]
     Active Substance: ACYCLOVIR
     Indication: Product used for unknown indication
     Dosage: 400 MG
  4. ACYCLOVIR [Suspect]
     Active Substance: ACYCLOVIR
  5. ACYCLOVIR [Suspect]
     Active Substance: ACYCLOVIR
  6. COTRIMOXAZOLE [Suspect]
     Active Substance: SULFAMETHOXAZOLE\TRIMETHOPRIM
     Indication: Product used for unknown indication
     Dosage: 480 MG
  7. COTRIMOXAZOLE [Suspect]
     Active Substance: SULFAMETHOXAZOLE\TRIMETHOPRIM
  8. ELIQUIS [Suspect]
     Active Substance: APIXABAN
     Indication: Product used for unknown indication
     Dosage: 5 MG
  9. ELIQUIS [Suspect]
     Active Substance: APIXABAN
  10. NINLARO [Suspect]
     Active Substance: IXAZOMIB CITRATE
     Indication: Product used for unknown indication
     Dosage: 4 MG
  11. NINLARO [Suspect]
     Active Substance: IXAZOMIB CITRATE
  12. REVLIMID [Suspect]
     Active Substance: LENALIDOMIDE
     Indication: Product used for unknown indication
     Dosage: 25 MG
  13. REVLIMID [Suspect]
     Active Substance: LENALIDOMIDE
  14. DEXAMETHASONE [Suspect]
     Active Substance: DEXAMETHASONE
     Indication: Product used for unknown indication
     Dosage: UNK
  15. DEXAMETHASONE [Suspect]
     Active Substance: DEXAMETHASONE
  16. POMALIDOMIDE [Suspect]
     Active Substance: POMALIDOMIDE
     Indication: Product used for unknown indication
  17. POMALIDOMIDE [Suspect]
     Active Substance: POMALIDOMIDE
  18. POMALIDOMIDE [Suspect]
     Active Substance: POMALIDOMIDE
  19. POMALIDOMIDE [Suspect]
     Active Substance: POMALIDOMIDE
  20. ASPIRIN [Concomitant]
     Active Substance: ASPIRIN
     Indication: Product used for unknown indication
  21. FUROSEMIDE [Concomitant]
     Active Substance: FUROSEMIDE
     Indication: Product used for unknown indication
  22. FUROSEMIDE [Concomitant]
     Active Substance: FUROSEMIDE
  23. FUROSEMIDE [Concomitant]
     Active Substance: FUROSEMIDE
  24. FUROSEMIDE [Concomitant]
     Active Substance: FUROSEMIDE
  25. AZITHROMYCIN [Concomitant]
     Active Substance: AZITHROMYCIN
     Indication: Product used for unknown indication
  26. AZITHROMYCIN [Concomitant]
     Active Substance: AZITHROMYCIN
  27. AZITHROMYCIN [Concomitant]
     Active Substance: AZITHROMYCIN
  28. AZITHROMYCIN [Concomitant]
     Active Substance: AZITHROMYCIN
  29. COTRIMOXAZOLE [Concomitant]
     Active Substance: SULFAMETHOXAZOLE\TRIMETHOPRIM
     Indication: Product used for unknown indication

REACTIONS (2)
  - Pneumonia [Recovered/Resolved]
  - Toxicity to various agents [Unknown]

NARRATIVE: CASE EVENT DATE: 20230103
